FAERS Safety Report 15042141 (Version 2)
Quarter: 2018Q2

REPORT INFORMATION
  Report Type: Spontaneous
  Country: US (occurrence: US)
  Receive Date: 20180621
  Receipt Date: 20180622
  Transmission Date: 20180711
  Serious: Yes (Other)
  Sender: FDA-Public Use
  Company Number: US-PFIZER INC-2018250511

PATIENT
  Age: 61 Year
  Sex: Female
  Weight: 57.61 kg

DRUGS (5)
  1. FLUCONAZOLE. [Suspect]
     Active Substance: FLUCONAZOLE
     Dosage: 100 MG, WEEKLY(FOR 4 WEEKS)
     Route: 048
     Dates: start: 2017
  2. METOPROLOL. [Concomitant]
     Active Substance: METOPROLOL
     Indication: BLOOD PRESSURE ABNORMAL
     Dosage: 25 MG, DAILY
     Dates: start: 201806
  3. FLUCONAZOLE. [Suspect]
     Active Substance: FLUCONAZOLE
     Indication: TINEA VERSICOLOUR
     Dosage: 300 MG, 1X/DAY (TODAY AND THEN 300 MG 3 WEEKS LATER)
  4. VENTOLIN [Concomitant]
     Active Substance: ALBUTEROL SULFATE
     Indication: CHRONIC OBSTRUCTIVE PULMONARY DISEASE
     Dosage: 90 UG, AS NEEDED [EVERY 4-6 HRS]
     Route: 055
     Dates: start: 2003
  5. ADVAIR HFA [Concomitant]
     Active Substance: FLUTICASONE PROPIONATE\SALMETEROL XINAFOATE
     Indication: CHRONIC OBSTRUCTIVE PULMONARY DISEASE
     Dosage: UNK, 2X/DAY(500/50 MORNING AND NIGHT)
     Dates: start: 2003

REACTIONS (4)
  - Drug ineffective for unapproved indication [Not Recovered/Not Resolved]
  - Fatigue [Unknown]
  - Syncope [Unknown]
  - Renal failure [Unknown]

NARRATIVE: CASE EVENT DATE: 201803
